FAERS Safety Report 23339040 (Version 1)
Quarter: 2023Q4

REPORT INFORMATION
  Report Type: Spontaneous
  Country: US (occurrence: US)
  Receive Date: 20231226
  Receipt Date: 20231226
  Transmission Date: 20240110
  Serious: No
  Sender: FDA-Public Use
  Company Number: US-REVANCE THERAPEUTICS INC.-US-REV-2023-000535

PATIENT

DRUGS (3)
  1. DAXIBOTULINUMTOXIN A-LANM [Suspect]
     Active Substance: DAXIBOTULINUMTOXIN A-LANM
     Indication: Skin cosmetic procedure
     Dosage: 52 UNITS TOTAL (12 UNITS FRONTALIS, 18 UNITS GLABELLA, 22 UNITS LATERAL CANTHAL/PERIORBITAL AREA)
     Route: 065
     Dates: start: 20231023
  2. TRANEXAMIC ACID [Concomitant]
     Active Substance: TRANEXAMIC ACID
     Indication: Product used for unknown indication
     Dosage: 650 MILLIGRAM, QD
     Route: 065
  3. SULFACETAMIDE SODIUM\SULFUR [Concomitant]
     Active Substance: SULFACETAMIDE SODIUM\SULFUR
     Indication: Infection prophylaxis
     Dosage: 10-5 %

REACTIONS (3)
  - Lacrimation increased [Recovering/Resolving]
  - Skin irritation [Recovering/Resolving]
  - Off label use [Unknown]

NARRATIVE: CASE EVENT DATE: 20231023
